FAERS Safety Report 6678647-1 (Version None)
Quarter: 2010Q2

REPORT INFORMATION
  Report Type: 
  Country: None (occurrence: None)
  Receive Date: 20100413
  Receipt Date: 20100401
  Transmission Date: 20101027
  Serious: Yes (Hospitalization)
  Sender: FDA-Public Use
  Company Number: JP-PFIZER INC-2010043273

PATIENT
  Age: 75 Year
  Sex: Male
  Weight: 55.7 kg

DRUGS (7)
  1. SUNITINIB MALATE [Suspect]
     Indication: RENAL CELL CARCINOMA
     Dosage: 50 MG, DAILY, TDD 50 MG
     Route: 048
     Dates: start: 20090617
  2. CONIEL [Concomitant]
     Dosage: UNK
     Route: 048
  3. CANDESARTAN CILEXETIL [Concomitant]
     Dosage: UNK
     Route: 048
  4. ARTIST [Concomitant]
     Dosage: UNK
     Route: 048
  5. LASIX [Concomitant]
     Dosage: UNK
     Route: 048
  6. TAKEPRON [Concomitant]
     Dosage: UNK
     Route: 048
  7. ASPARA [Concomitant]
     Dosage: UNK
     Route: 048

REACTIONS (1)
  - ALTERED STATE OF CONSCIOUSNESS [None]
